FAERS Safety Report 6547010-6 (Version None)
Quarter: 2010Q1

REPORT INFORMATION
  Report Type: 
  Country: None (occurrence: None)
  Receive Date: 20100122
  Receipt Date: 20100118
  Transmission Date: 20100710
  Serious: Yes (Hospitalization)
  Sender: FDA-Public Use
  Company Number: B0626570A

PATIENT
  Sex: Female

DRUGS (6)
  1. AUGMENTIN [Suspect]
     Route: 065
     Dates: start: 20091216
  2. NEXIUM [Suspect]
     Dosage: 40MG UNKNOWN
     Route: 065
     Dates: start: 20091216, end: 20091223
  3. PERFALGAN [Suspect]
     Route: 065
     Dates: start: 20091216
  4. MORPHINE [Suspect]
     Route: 065
     Dates: start: 20091216
  5. SOLU-MEDROL [Suspect]
     Route: 065
     Dates: start: 20091216, end: 20091216
  6. PRIMPERAN TAB [Suspect]
     Route: 065
     Dates: start: 20091216

REACTIONS (1)
  - THROMBOCYTOPENIA [None]
